FAERS Safety Report 7638287-4 (Version None)
Quarter: 2011Q3

REPORT INFORMATION
  Report Type: 
  Country: None (occurrence: None)
  Receive Date: 20110727
  Receipt Date: 20110718
  Transmission Date: 20111222
  Serious: Yes (Hospitalization)
  Sender: FDA-Public Use
  Company Number: FR-BRISTOL-MYERS SQUIBB COMPANY-15913510

PATIENT
  Age: 77 Year
  Sex: Female

DRUGS (4)
  1. ORENCIA [Suspect]
     Indication: RHEUMATOID ARTHRITIS
     Dosage: NO OF INF-6.LAST INF ON 29JUN11.
     Route: 042
     Dates: start: 20110601
  2. LERCANIDIPINE [Concomitant]
     Dosage: 10MG FILM-COATED SCORED TABLET,
  3. PREDNISONE [Concomitant]
     Dosage: 20MG TABLET
  4. LASIX [Concomitant]

REACTIONS (2)
  - ELECTROCARDIOGRAM AMBULATORY ABNORMAL [None]
  - ATRIAL FIBRILLATION [None]
